FAERS Safety Report 5868785-5 (Version None)
Quarter: 2008Q3

REPORT INFORMATION
  Report Type: 
  Country: None (occurrence: None)
  Receive Date: 20080902
  Receipt Date: 20080902
  Transmission Date: 20090109
  Serious: Yes (Hospitalization)
  Sender: FDA-Public Use
  Company Number: None

PATIENT
  Age: 42 Year
  Sex: Male
  Weight: 81.1939 kg

DRUGS (2)
  1. CHANTIX [Suspect]
     Indication: DEPENDENCE
  2. CHANTIX [Suspect]
     Indication: TOBACCO USER

REACTIONS (3)
  - INTENTIONAL SELF-INJURY [None]
  - SUICIDE ATTEMPT [None]
  - WOUND [None]
